FAERS Safety Report 19364508 (Version 1)
Quarter: 2021Q2

REPORT INFORMATION
  Report Type: Spontaneous
  Country: TH (occurrence: TH)
  Receive Date: 20210603
  Receipt Date: 20210603
  Transmission Date: 20210717
  Serious: Yes (Death, Other)
  Sender: FDA-Public Use
  Company Number: TH-BAYER-2021-147638

PATIENT
  Age: 79 Year
  Sex: Male

DRUGS (1)
  1. PRIMOVIST [Suspect]
     Active Substance: GADOXETATE DISODIUM
     Indication: MAGNETIC RESONANCE IMAGING HEPATOBILIARY
     Dosage: UNK UNK, ONCE

REACTIONS (4)
  - Chest discomfort [Fatal]
  - Choking [Fatal]
  - Oxygen saturation decreased [Fatal]
  - Blood pressure decreased [Fatal]
